FAERS Safety Report 8776101 (Version 1)
Quarter: 2012Q4

REPORT INFORMATION
  Report Type: 
  Country: US (occurrence: US)
  Receive Date: 20120910
  Receipt Date: 20120910
  Transmission Date: 20130627
  Serious: Yes (Other)
  Sender: FDA-Public Use
  Company Number: US-GLAXOSMITHKLINE-A0991815A

PATIENT
  Sex: Female

DRUGS (3)
  1. LAMICTAL [Suspect]
     Indication: DEPRESSION
     Dosage: 150MG Per day
     Route: 048
  2. REMERON [Concomitant]
  3. CELEXA [Concomitant]

REACTIONS (4)
  - Aggression [Unknown]
  - Agitation [Unknown]
  - Affective disorder [Unknown]
  - Off label use [Unknown]
